FAERS Safety Report 19794991 (Version 1)
Quarter: 2021Q3

REPORT INFORMATION
  Report Type: Spontaneous
  Country: US (occurrence: US)
  Receive Date: 20210907
  Receipt Date: 20210907
  Transmission Date: 20211014
  Serious: Yes (Hospitalization, Other)
  Sender: FDA-Public Use
  Company Number: US-MICRO LABS LIMITED-ML2021-02134

PATIENT
  Sex: Female

DRUGS (19)
  1. SERTRALINE [Suspect]
     Active Substance: SERTRALINE HYDROCHLORIDE
  2. VENLAFAXINE [Suspect]
     Active Substance: VENLAFAXINE HYDROCHLORIDE
  3. ARIPIPRAZOLE. [Suspect]
     Active Substance: ARIPIPRAZOLE
  4. BUPROPION. [Suspect]
     Active Substance: BUPROPION
  5. LAMOTRIGINE. [Suspect]
     Active Substance: LAMOTRIGINE
  6. NALTREXONE [Suspect]
     Active Substance: NALTREXONE
  7. NORTRIPTYLINE [Suspect]
     Active Substance: NORTRIPTYLINE
  8. QUETIAPINE. [Suspect]
     Active Substance: QUETIAPINE
  9. LEVOMILNACIPRAN. [Suspect]
     Active Substance: LEVOMILNACIPRAN HYDROCHLORIDE
  10. DULOXETINE. [Suspect]
     Active Substance: DULOXETINE
  11. MIRTAZAPINE. [Suspect]
     Active Substance: MIRTAZAPINE
  12. PHENELZINE [Suspect]
     Active Substance: PHENELZINE
  13. LITHIUM. [Suspect]
     Active Substance: LITHIUM
  14. LEVOTHYROXINE. [Suspect]
     Active Substance: LEVOTHYROXINE
  15. FLUOXETINE [Suspect]
     Active Substance: FLUOXETINE HYDROCHLORIDE
  16. LORAZEPAM. [Suspect]
     Active Substance: LORAZEPAM
  17. METHYLPHENIDATE. [Suspect]
     Active Substance: METHYLPHENIDATE
  18. VILAZODONE [Suspect]
     Active Substance: VILAZODONE
  19. OLANZAPINE. [Suspect]
     Active Substance: OLANZAPINE

REACTIONS (1)
  - Drug ineffective [Unknown]
